FAERS Safety Report 16878869 (Version 1)
Quarter: 2019Q4

REPORT INFORMATION
  Report Type: Report from Study
  Country: US (occurrence: US)
  Receive Date: 20191002
  Receipt Date: 20191002
  Transmission Date: 20200122
  Serious: Yes (Hospitalization)
  Sender: FDA-Public Use
  Company Number: US-ACTELION-A-US2017-151538

PATIENT
  Age: 52 Year
  Sex: Female

DRUGS (8)
  1. BACLOFEN. [Concomitant]
     Active Substance: BACLOFEN
  2. ESTRACE [Suspect]
     Active Substance: ESTRADIOL
     Indication: PRODUCT USED FOR UNKNOWN INDICATION
     Route: 065
  3. DEPO-MEDROL [Concomitant]
     Active Substance: METHYLPREDNISOLONE ACETATE
  4. UPTRAVI [Suspect]
     Active Substance: SELEXIPAG
     Indication: PULMONARY ARTERIAL HYPERTENSION
     Dosage: 1200 MCG, BID
     Route: 048
     Dates: start: 20160512
  5. IBUPROFEN. [Concomitant]
     Active Substance: IBUPROFEN
  6. DIAZEPAM. [Concomitant]
     Active Substance: DIAZEPAM
  7. MUCINEX DM [Concomitant]
     Active Substance: DEXTROMETHORPHAN HYDROBROMIDE\GUAIFENESIN
  8. ADCIRCA [Concomitant]
     Active Substance: TADALAFIL

REACTIONS (9)
  - Influenza [Unknown]
  - Migraine [Unknown]
  - Flatulence [Unknown]
  - Fungal infection [Unknown]
  - Vulvovaginal discomfort [Unknown]
  - Infection [Unknown]
  - Tooth disorder [Unknown]
  - Surgery [Unknown]
  - Sinusitis [Unknown]

NARRATIVE: CASE EVENT DATE: 20170312
